FAERS Safety Report 7763199-5 (Version None)
Quarter: 2011Q3

REPORT INFORMATION
  Report Type: 
  Country: None (occurrence: None)
  Receive Date: 20110920
  Receipt Date: 20110914
  Transmission Date: 20111222
  Serious: Yes (Hospitalization, Other)
  Sender: FDA-Public Use
  Company Number: PHEH2011US04372

PATIENT
  Age: 54 Year
  Sex: Female
  Weight: 120 kg

DRUGS (15)
  1. CYCLOSPORINE [Suspect]
  2. BACTRIM [Concomitant]
     Dosage: 1 DF, TIW
     Route: 048
     Dates: start: 19980911
  3. METHYLPREDNISOLONE [Concomitant]
     Indication: PROPHYLAXIS AGAINST TRANSPLANT REJECTION
     Route: 048
  4. ACYCLOVIR [Concomitant]
     Dosage: 400 MG, QD
     Route: 048
  5. FEXOFENADINE [Concomitant]
     Route: 048
  6. AZITHROMYCIN [Concomitant]
     Dosage: 750 MG, QW
     Route: 048
     Dates: start: 19980911
  7. TACROLIMUS [Concomitant]
     Indication: PROPHYLAXIS AGAINST TRANSPLANT REJECTION
     Dosage: 2 MG, QD
     Route: 048
     Dates: start: 19991020
  8. ACTONEL [Concomitant]
     Dosage: 35 MG, QW
     Route: 048
     Dates: start: 19990209
  9. METOPROLOL TARTRATE [Concomitant]
     Dosage: 50 MG, QD
     Route: 048
     Dates: start: 19980911
  10. LIPITOR [Concomitant]
     Dosage: 10 MG, QD
     Route: 048
     Dates: start: 19980911
  11. PREDNISONE [Concomitant]
     Dosage: 20 MG, QD
     Route: 048
     Dates: start: 19980911
  12. AZATHIOPRINE [Concomitant]
     Indication: PROPHYLAXIS AGAINST TRANSPLANT REJECTION
     Route: 048
  13. AMARYL [Concomitant]
     Dosage: 8 MG, QD
     Route: 048
     Dates: start: 19980911
  14. MYCOPHENOLATE MOFETIL [Concomitant]
     Indication: PROPHYLAXIS AGAINST TRANSPLANT REJECTION
     Dosage: 1000 MG, QD
     Route: 048
     Dates: start: 19991020
  15. DIOVAN HCT [Concomitant]
     Dosage: 12.5 MG/160 MG, QD
     Route: 048
     Dates: start: 20090202

REACTIONS (1)
  - DIABETES MELLITUS [None]
